FAERS Safety Report 11007689 (Version 2)
Quarter: 2015Q2

REPORT INFORMATION
  Report Type: Spontaneous
  Country: US (occurrence: US)
  Receive Date: 20150409
  Receipt Date: 20150525
  Transmission Date: 20150821
  Serious: No
  Sender: FDA-Public Use
  Company Number: US-JNJFOC-20101107057

PATIENT
  Age: 30 Year
  Sex: Female
  Weight: 53.98 kg

DRUGS (5)
  1. FOLIC ACID. [Concomitant]
     Active Substance: FOLIC ACID
     Route: 065
  2. REMICADE [Suspect]
     Active Substance: INFLIXIMAB
     Indication: COLITIS ULCERATIVE
     Dosage: EVENT OCCURED AFTER THE 3RD INDUCTION INFUSION AT 6 WEEKS??#23 INFUSION
     Route: 042
     Dates: start: 20100706
  3. ENTOCORT [Concomitant]
     Active Substance: BUDESONIDE
     Indication: COLITIS
     Route: 065
     Dates: start: 200910, end: 201003
  4. ASACOL [Concomitant]
     Active Substance: MESALAMINE
     Indication: COLITIS
     Route: 065
     Dates: start: 200910, end: 201003
  5. ROWASA [Concomitant]
     Active Substance: MESALAMINE
     Indication: COLITIS
     Route: 065
     Dates: start: 200901, end: 201003

REACTIONS (1)
  - Herpes simplex [Recovered/Resolved with Sequelae]

NARRATIVE: CASE EVENT DATE: 20130814
